FAERS Safety Report 5967559-4 (Version None)
Quarter: 2008Q4

REPORT INFORMATION
  Report Type: 
  Country: None (occurrence: None)
  Receive Date: 20081125
  Receipt Date: 20081119
  Transmission Date: 20090506
  Serious: Yes (Other)
  Sender: FDA-Public Use
  Company Number: BR-PFIZER INC-2008098445

PATIENT
  Sex: Female

DRUGS (1)
  1. DEPO-PROVERA SUSPENSION/INJ [Suspect]
     Indication: CONTRACEPTION
     Dates: start: 20080125, end: 20080125

REACTIONS (5)
  - ABDOMINAL DISTENSION [None]
  - AMENORRHOEA [None]
  - DEPRESSION [None]
  - HYPERTENSION [None]
  - WEIGHT INCREASED [None]
